FAERS Safety Report 9345334 (Version 2)
Quarter: 2013Q2

REPORT INFORMATION
  Report Type: Spontaneous
  Country: EE (occurrence: EE)
  Receive Date: 20130613
  Receipt Date: 20130614
  Transmission Date: 20140414
  Serious: Yes (Hospitalization)
  Sender: FDA-Public Use
  Company Number: EE-B.I. PHARMACEUTICALS,INC./RIDGEFIELD-2013-AP-00467AP

PATIENT
  Age: 69 Year
  Sex: Female

DRUGS (7)
  1. PRADAXA [Suspect]
     Indication: ATRIAL FIBRILLATION
     Dosage: 300 MG
     Route: 048
     Dates: start: 201205, end: 20130119
  2. CARVEDILOL HEXAL [Concomitant]
     Indication: CARDIAC FAILURE
     Dosage: 50 MG
     Route: 048
     Dates: start: 2005
  3. RAMIPRIL [Concomitant]
     Indication: HYPERTENSION
     Dosage: 2.5 MG
     Route: 048
     Dates: start: 2005
  4. SPIRIX [Concomitant]
     Indication: CARDIAC FAILURE
     Dosage: 25 MG
     Route: 048
     Dates: start: 2011
  5. DIGOXIN [Concomitant]
     Indication: CARDIAC FAILURE
     Dosage: 0.25 MG
     Route: 048
     Dates: start: 2005
  6. L-THYROXIN [Concomitant]
     Indication: HYPOTHYROIDISM
     Dosage: 2.5 MCG
     Route: 048
     Dates: start: 2007
  7. LASIX [Concomitant]
     Indication: CARDIAC FAILURE
     Dosage: 60 MG
     Route: 048
     Dates: start: 2013

REACTIONS (3)
  - Urticaria [Recovered/Resolved]
  - Abdominal pain [Recovered/Resolved]
  - Dyspnoea [Recovered/Resolved]
